FAERS Safety Report 6400348-5 (Version None)
Quarter: 2009Q4

REPORT INFORMATION
  Report Type: 
  Country: None (occurrence: None)
  Receive Date: 20091014
  Receipt Date: 20090902
  Transmission Date: 20100525
  Serious: Yes (Disabling)
  Sender: FDA-Public Use
  Company Number: US-PURDUE-USA-2009-0040073

PATIENT
  Sex: Female

DRUGS (1)
  1. OXYCONTIN [Suspect]
     Indication: ANALGESIC THERAPY
     Dosage: UNK
     Dates: start: 19981125

REACTIONS (8)
  - ANXIETY [None]
  - CEREBROVASCULAR ACCIDENT [None]
  - CHILLS [None]
  - DIARRHOEA [None]
  - MUSCLE SPASMS [None]
  - NAUSEA [None]
  - PARALYSIS [None]
  - TREMOR [None]
